FAERS Safety Report 4872254-9 (Version None)
Quarter: 2005Q4

REPORT INFORMATION
  Report Type: 
  Country: None (occurrence: None)
  Receive Date: 20051201
  Receipt Date: 20050729
  Transmission Date: 20060501
  Serious: No
  Sender: FDA-Public Use
  Company Number: 2005PV000779

PATIENT
  Age: 66 Year
  Sex: Female
  Weight: 88.905 kg

DRUGS (11)
  1. BYETTA [Suspect]
     Indication: DIABETES MELLITUS NON-INSULIN-DEPENDENT
     Dosage: 5 MCG;BID;SC
     Route: 058
     Dates: start: 20050727
  2. GLUCOVANCE [Concomitant]
  3. ADVICOR [Concomitant]
  4. ZETIA [Concomitant]
  5. EVISTA [Concomitant]
  6. VASOTEC [Concomitant]
  7. ALDOMET [Concomitant]
  8. ASPIRIN [Concomitant]
  9. CENTRUM SILVER [Concomitant]
  10. VITAMIN B-12 [Concomitant]
  11. TOPROL-XL [Concomitant]

REACTIONS (6)
  - DIZZINESS [None]
  - DYSPEPSIA [None]
  - ERUCTATION [None]
  - FEELING JITTERY [None]
  - INSOMNIA [None]
  - NAUSEA [None]
